FAERS Safety Report 19923648 (Version 2)
Quarter: 2021Q4

REPORT INFORMATION
  Report Type: Report from Study
  Country: EG (occurrence: EG)
  Receive Date: 20211005
  Receipt Date: 20211122
  Transmission Date: 20220303
  Serious: Yes (Other)
  Sender: FDA-Public Use
  Company Number: EG-NOVARTISPH-NVSC2021EG222066

PATIENT
  Age: 27 Year
  Sex: Female

DRUGS (2)
  1. COSENTYX [Suspect]
     Active Substance: SECUKINUMAB
     Indication: Psoriasis
     Dosage: 300 MG, QMO (2 PRE FILLED PENS EVERY 1 MONTH)
     Route: 058
     Dates: start: 201912, end: 202006
  2. COSENTYX [Suspect]
     Active Substance: SECUKINUMAB
     Dosage: 300 MG, Q2MO (2 PREFILLED PENS EVERY TWO MONTHS)
     Route: 058
     Dates: start: 202012, end: 202106

REACTIONS (9)
  - Inappropriate schedule of product administration [Not Recovered/Not Resolved]
  - Injection site pain [Not Recovered/Not Resolved]
  - Dysstasia [Not Recovered/Not Resolved]
  - Rebound psoriasis [Recovered/Resolved]
  - Acne [Not Recovered/Not Resolved]
  - Psoriasis [Recovered/Resolved]
  - Product availability issue [Not Recovered/Not Resolved]
  - Incorrect dose administered [Recovered/Resolved]
  - Drug ineffective [Unknown]

NARRATIVE: CASE EVENT DATE: 20191201
